FAERS Safety Report 5330015-0 (Version None)
Quarter: 2007Q2

REPORT INFORMATION
  Report Type: 
  Country: None (occurrence: None)
  Receive Date: 20070521
  Receipt Date: 20070517
  Transmission Date: 20071010
  Serious: Yes (Death, Hospitalization)
  Sender: FDA-Public Use
  Company Number: B0471431A

PATIENT
  Age: 53 Year
  Sex: Female
  Weight: 83 kg

DRUGS (5)
  1. COMBIVIR [Suspect]
     Indication: HIV INFECTION
     Dosage: 2TAB PER DAY
     Route: 048
     Dates: start: 20060420, end: 20070120
  2. BLINDED TRIAL MEDICATION [Suspect]
     Indication: HIV INFECTION
     Dates: start: 20060420, end: 20070130
  3. ACYCLOVIR [Concomitant]
     Indication: GENITAL HERPES
     Dates: start: 20020724
  4. HYDROCHLOROTHIAZIDE [Concomitant]
     Dates: start: 20020724
  5. ATENOLOL [Concomitant]
     Dates: start: 20020724

REACTIONS (12)
  - ANOREXIA [None]
  - CHEST PAIN [None]
  - DIFFUSE LARGE B-CELL LYMPHOMA [None]
  - DYSPNOEA [None]
  - FATIGUE [None]
  - LYMPHADENOPATHY [None]
  - NIGHT SWEATS [None]
  - OEDEMA PERIPHERAL [None]
  - PAIN IN EXTREMITY [None]
  - PLEURITIC PAIN [None]
  - TACHYCARDIA [None]
  - TUBERCULOSIS [None]
